FAERS Safety Report 9719452 (Version 1)
Quarter: 2013Q4

REPORT INFORMATION
  Report Type: Spontaneous
  Country: US (occurrence: US)
  Receive Date: 20131128
  Receipt Date: 20131128
  Transmission Date: 20140711
  Serious: Yes (Death)
  Sender: FDA-Public Use
  Company Number: US-INDICUS PHARMA-000168

PATIENT
  Age: 42 Year
  Sex: Male

DRUGS (2)
  1. METFORMIN HYDROCHLORIDE [Suspect]
     Dosage: ROA: INGESTION+PARENTERAL
  2. INSULIN [Suspect]
     Dosage: ROA: INGESTION+ PARENTERAL

REACTIONS (2)
  - Exposure via ingestion [Fatal]
  - Completed suicide [Fatal]
